FAERS Safety Report 14616217 (Version 1)
Quarter: 2018Q1

REPORT INFORMATION
  Report Type: Spontaneous
  Country: US (occurrence: US)
  Receive Date: 20180309
  Receipt Date: 20180309
  Transmission Date: 20180509
  Serious: Yes (Other)
  Sender: FDA-Public Use
  Company Number: US-009507513-1803USA002705

PATIENT
  Age: 69 Year
  Sex: Female

DRUGS (3)
  1. DIMETAPP (NEW FORMULA) [Concomitant]
     Dosage: UNK
  2. JANUVIA [Suspect]
     Active Substance: SITAGLIPTIN PHOSPHATE
     Indication: TYPE 2 DIABETES MELLITUS
     Dosage: 1 TABLET AT NIGHT
     Route: 048
     Dates: start: 2015, end: 201803
  3. ASPIRIN. [Concomitant]
     Active Substance: ASPIRIN
     Dosage: UNK
     Route: 048

REACTIONS (3)
  - Drug dose omission [Unknown]
  - Blood glucose increased [Unknown]
  - Cataract operation [Unknown]

NARRATIVE: CASE EVENT DATE: 201802
